FAERS Safety Report 20177518 (Version 2)
Quarter: 2022Q1

REPORT INFORMATION
  Report Type: Spontaneous
  Country: JP (occurrence: JP)
  Receive Date: 20211213
  Receipt Date: 20220216
  Transmission Date: 20220423
  Serious: Yes (Death)
  Sender: FDA-Public Use
  Company Number: JP-DSJP-DSJ-2021-140875

PATIENT
  Age: 83 Year
  Sex: Male
  Weight: 58 kg

DRUGS (7)
  1. PRASUGREL HYDROCHLORIDE [Suspect]
     Active Substance: PRASUGREL HYDROCHLORIDE
     Indication: Angina pectoris
     Dosage: 20 MG, QD
     Route: 048
     Dates: start: 20210525, end: 20210525
  2. PRASUGREL HYDROCHLORIDE [Suspect]
     Active Substance: PRASUGREL HYDROCHLORIDE
     Dosage: 3.75 MG, QD
     Route: 048
     Dates: start: 20210526, end: 20210527
  3. ASPIRIN [Suspect]
     Active Substance: ASPIRIN
     Indication: Angina pectoris
     Dosage: 200 MG, QD
     Route: 048
     Dates: start: 20210525, end: 20210525
  4. ASPIRIN [Suspect]
     Active Substance: ASPIRIN
     Dosage: 100 MG, QD
     Route: 048
     Dates: start: 20210526, end: 20210527
  5. PROSTAL [CHLORMADINONE ACETATE] [Concomitant]
     Dosage: 50 MG, BID, AFTER BREAKFAST AND AFTER DINNER
     Route: 048
  6. PITAVASTATIN [Concomitant]
     Active Substance: PITAVASTATIN
     Indication: Dyslipidaemia
     Dosage: 2 MG, QD, AFTER DINNER
     Route: 048
  7. VONOPRAZAN FUMARATE [Concomitant]
     Active Substance: VONOPRAZAN FUMARATE
     Indication: Angina pectoris
     Dosage: 20 UNK, QD
     Route: 048
     Dates: start: 20210525

REACTIONS (1)
  - Cerebellar haemorrhage [Fatal]

NARRATIVE: CASE EVENT DATE: 20210526
